FAERS Safety Report 21968327 (Version 5)
Quarter: 2023Q2

REPORT INFORMATION
  Report Type: Report from Study
  Country: US (occurrence: US)
  Receive Date: 20230208
  Receipt Date: 20230505
  Transmission Date: 20230722
  Serious: No
  Sender: FDA-Public Use
  Company Number: US-BIOVITRUM-2023US01975

PATIENT
  Age: 58 Year
  Sex: Female

DRUGS (2)
  1. KINERET [Suspect]
     Active Substance: ANAKINRA
     Indication: Still^s disease
     Dosage: DAILY
     Route: 058
     Dates: start: 20230125
  2. KINERET [Suspect]
     Active Substance: ANAKINRA
     Dosage: 100 MG , DAILY
     Route: 058
     Dates: start: 20230317

REACTIONS (11)
  - Intentional product misuse [Not Recovered/Not Resolved]
  - Pain [Unknown]
  - Peripheral swelling [Unknown]
  - Heart rate increased [Unknown]
  - Palpitations [Recovered/Resolved]
  - Headache [Recovered/Resolved]
  - Injection site erythema [Unknown]
  - Injection site pruritus [Unknown]
  - Injection site pain [Unknown]
  - Cough [Unknown]
  - Nasal congestion [Unknown]

NARRATIVE: CASE EVENT DATE: 20230317
